FAERS Safety Report 25019651 (Version 2)
Quarter: 2025Q1

REPORT INFORMATION
  Report Type: Spontaneous
  Country: US (occurrence: US)
  Receive Date: 20250227
  Receipt Date: 20250325
  Transmission Date: 20250409
  Serious: No
  Sender: NOVARTIS
  Company Number: US-002147023-NVSC2025US034041

PATIENT
  Age: 76 Year
  Sex: Male
  Weight: 66.3 kg

DRUGS (1)
  1. PLUVICTO [Suspect]
     Active Substance: LUTETIUM LU-177 VIPIVOTIDE TETRAXETAN
     Indication: Prostate cancer stage II
     Route: 042
     Dates: start: 20250124

REACTIONS (7)
  - General physical health deterioration [Recovering/Resolving]
  - Bronchitis [Unknown]
  - Sinusitis [Unknown]
  - Productive cough [Unknown]
  - Contusion [Recovering/Resolving]
  - White blood cell count decreased [Unknown]
  - Fatigue [Recovering/Resolving]

NARRATIVE: CASE EVENT DATE: 20250129
